FAERS Safety Report 6042246-5 (Version None)
Quarter: 2009Q1

REPORT INFORMATION
  Report Type: 
  Country: None (occurrence: None)
  Receive Date: 20090116
  Receipt Date: 20081209
  Transmission Date: 20090719
  Serious: Yes (Hospitalization)
  Sender: FDA-Public Use
  Company Number: ES-PFIZER INC-2008049073

PATIENT

DRUGS (12)
  1. SUNITINIB MALATE [Suspect]
     Indication: BREAST CANCER
     Dosage: 37.5 MG, UNK
     Route: 048
     Dates: start: 20080416, end: 20080517
  2. SUNITINIB MALATE [Suspect]
     Dosage: 37.5 MG, UNK
     Dates: start: 20080519, end: 20080925
  3. *CAPECITABINE [Suspect]
     Indication: BREAST CANCER
     Dosage: 2300 MG, 1X/DAY
     Dates: start: 20080416, end: 20080429
  4. *CAPECITABINE [Suspect]
     Dosage: 2300 MG, 1X/DAY
     Dates: start: 20080506, end: 20080519
  5. *CAPECITABINE [Suspect]
     Dosage: 2300 MG, 1X/DAY
     Dates: start: 20080606, end: 20080619
  6. *CAPECITABINE [Suspect]
     Dosage: 2300 MG, 1X/DAY
     Dates: start: 20080627, end: 20080710
  7. *CAPECITABINE [Suspect]
     Dosage: 2300 MG, 1X/DAY
     Dates: start: 20080718, end: 20080801
  8. *CAPECITABINE [Suspect]
     Dosage: 2300 MG, 1X/DAY
     Dates: start: 20080814, end: 20080828
  9. *CAPECITABINE [Suspect]
     Dosage: 2300 MG, 1X/DAY
     Dates: start: 20080904, end: 20080917
  10. ZOLPIDEM [Concomitant]
     Route: 048
     Dates: start: 20070101
  11. OMEPRAZOLE [Concomitant]
     Route: 048
     Dates: start: 20080311
  12. PYRIDOXINE HYDROCHLORIDE [Concomitant]
     Route: 048
     Dates: start: 20080429

REACTIONS (1)
  - ENTERITIS [None]
